FAERS Safety Report 6859575-5 (Version None)
Quarter: 2010Q3

REPORT INFORMATION
  Report Type: 
  Country: None (occurrence: None)
  Receive Date: 20100719
  Receipt Date: 20080301
  Transmission Date: 20110219
  Serious: No
  Sender: FDA-Public Use
  Company Number: US-PFIZER INC-2008019810

PATIENT
  Sex: Female
  Weight: 79.4 kg

DRUGS (6)
  1. CHANTIX [Suspect]
     Indication: SMOKING CESSATION THERAPY
     Dates: start: 20080229
  2. DEPAKOTE [Concomitant]
  3. PAXIL [Concomitant]
  4. XANAX [Concomitant]
  5. LEVOTHYROXINE SODIUM [Concomitant]
  6. CYTOMEL [Concomitant]

REACTIONS (1)
  - SOMNOLENCE [None]
